FAERS Safety Report 7220103-6 (Version None)
Quarter: 2011Q1

REPORT INFORMATION
  Report Type: 
  Country: None (occurrence: None)
  Receive Date: 20110111
  Receipt Date: 20101231
  Transmission Date: 20110831
  Serious: Yes (Hospitalization)
  Sender: FDA-Public Use
  Company Number: B0692288A

PATIENT
  Sex: Male

DRUGS (1)
  1. VALACICLOVIR [Suspect]
     Dosage: 1000MG THREE TIMES PER DAY
     Route: 048
     Dates: start: 20101217, end: 20101219

REACTIONS (5)
  - CONFUSIONAL STATE [None]
  - MALAISE [None]
  - ALTERED STATE OF CONSCIOUSNESS [None]
  - HALLUCINATION [None]
  - GAIT DISTURBANCE [None]
